FAERS Safety Report 20057728 (Version 1)
Quarter: 2021Q4

REPORT INFORMATION
  Report Type: Report from Study
  Country: US (occurrence: None)
  Receive Date: 20211111
  Receipt Date: 20211111
  Transmission Date: 20220304
  Serious: Yes (Hospitalization)
  Sender: FDA-Public Use
  Company Number: US-Eisai Medical Research-EC-2021-102693

PATIENT
  Age: 50 Year
  Sex: Female
  Weight: 76.5 kg

DRUGS (3)
  1. LENVIMA [Suspect]
     Active Substance: LENVATINIB
     Indication: Endometrial cancer
     Route: 048
     Dates: start: 20211006, end: 202110
  2. LORAZEPAM [Concomitant]
     Active Substance: LORAZEPAM
  3. MORPHINE SULFATE [Concomitant]
     Active Substance: MORPHINE SULFATE

REACTIONS (7)
  - Pain [Unknown]
  - Asthenia [Unknown]
  - Alopecia [Unknown]
  - Weight decreased [Unknown]
  - Decreased appetite [Unknown]
  - Insomnia [Unknown]
  - Emotional disorder [Unknown]

NARRATIVE: CASE EVENT DATE: 20211001
